FAERS Safety Report 10363765 (Version 2)
Quarter: 2014Q3

REPORT INFORMATION
  Report Type: Report from Study
  Country: US (occurrence: US)
  Receive Date: 20140805
  Receipt Date: 20140807
  Transmission Date: 20150326
  Serious: Yes (Death, Hospitalization)
  Sender: FDA-Public Use
  Company Number: US-009507513-1408USA001287

PATIENT
  Age: 72 Year
  Sex: Female
  Weight: 53.52 kg

DRUGS (2)
  1. VORINOSTAT [Suspect]
     Active Substance: VORINOSTAT
     Indication: HYPOPHARYNGEAL CANCER
     Dosage: 400 MG, UNK
     Route: 048
     Dates: start: 20140609, end: 20140623
  2. CISPLATIN. [Suspect]
     Active Substance: CISPLATIN
     Indication: HYPOPHARYNGEAL CANCER
     Dosage: 100 MG/M2, UNK
     Dates: start: 20140616, end: 20140623

REACTIONS (12)
  - Septic shock [Fatal]
  - Haemorrhage intracranial [Recovered/Resolved]
  - Hyponatraemia [Not Recovered/Not Resolved]
  - Acute myocardial infarction [Fatal]
  - Peripheral ischaemia [Fatal]
  - Thrombosis [Fatal]
  - Dehydration [Unknown]
  - Colitis [Fatal]
  - Respiratory failure [Fatal]
  - Atrial fibrillation [Fatal]
  - Multi-organ failure [Fatal]
  - Sputum retention [Unknown]

NARRATIVE: CASE EVENT DATE: 20140621
